FAERS Safety Report 5466379-7 (Version None)
Quarter: 2007Q3

REPORT INFORMATION
  Report Type: 
  Country: None (occurrence: None)
  Receive Date: 20070920
  Receipt Date: 20070912
  Transmission Date: 20080115
  Serious: Yes (Hospitalization)
  Sender: FDA-Public Use
  Company Number: 2007330975

PATIENT
  Sex: Female

DRUGS (1)
  1. DIPHENHYDRAMINE HCL [Suspect]
     Indication: SUICIDE ATTEMPT
     Dosage: 57 ( FORMULATION UNSPECIFIED), ORAL
     Route: 048
     Dates: start: 20050501

REACTIONS (1)
  - SUICIDE ATTEMPT [None]
